FAERS Safety Report 9353463 (Version 1)
Quarter: 2013Q2

REPORT INFORMATION
  Report Type: Other
  Country: IT (occurrence: IT)
  Receive Date: 20130618
  Receipt Date: 20130618
  Transmission Date: 20140414
  Serious: Yes (Hospitalization)
  Sender: FDA-Public Use
  Company Number: IT-SUN PHARMACEUTICAL INDUSTRIES LTD-2013SUN00838

PATIENT
  Sex: 0

DRUGS (2)
  1. GEMCITABINA [Suspect]
     Indication: PANCREATIC CARCINOMA
     Dosage: 1900 MG, CYCLICAL
     Route: 042
     Dates: start: 20130101, end: 20130429
  2. LEVOFLOXACIN [Suspect]
     Indication: INFECTION
     Dosage: 500 MG, OD
     Route: 048
     Dates: start: 20130501, end: 20130507

REACTIONS (3)
  - Pleural effusion [Recovering/Resolving]
  - Renal failure [Recovering/Resolving]
  - Oedema [Recovering/Resolving]
